FAERS Safety Report 19030849 (Version 3)
Quarter: 2021Q2

REPORT INFORMATION
  Report Type: Report from Study
  Country: NL (occurrence: NL)
  Receive Date: 20210319
  Receipt Date: 20210423
  Transmission Date: 20210717
  Serious: Yes (Death, Other)
  Sender: FDA-Public Use
  Company Number: NVSC2021NL058734

PATIENT

DRUGS (1)
  1. INC280 [Suspect]
     Active Substance: CAPMATINIB
     Indication: PRODUCT USED FOR UNKNOWN INDICATION
     Dosage: UNK
     Route: 065
     Dates: start: 20201204, end: 20210127

REACTIONS (5)
  - Gene mutation [Unknown]
  - Metastasis [Unknown]
  - Therapeutic response changed [Unknown]
  - Disease progression [Fatal]
  - Drug ineffective [Unknown]
